FAERS Safety Report 21408154 (Version 1)
Quarter: 2022Q4

REPORT INFORMATION
  Report Type: Spontaneous
  Country: US (occurrence: None)
  Receive Date: 20221004
  Receipt Date: 20221004
  Transmission Date: 20230113
  Serious: No
  Sender: FDA-Public Use
  Company Number: None

PATIENT
  Age: 69 Year
  Sex: Male
  Weight: 102.15 kg

DRUGS (7)
  1. PAXLOVID [Suspect]
     Active Substance: NIRMATRELVIR\RITONAVIR
     Indication: SARS-CoV-2 test positive
     Dosage: OTHER QUANTITY : 3 TABLET(S);?FREQUENCY : EVERY 12 HOURS;?
     Route: 048
     Dates: start: 20221002, end: 20221002
  2. ATORVASTATIN [Concomitant]
     Active Substance: ATORVASTATIN
  3. FISH OIL [Concomitant]
     Active Substance: FISH OIL
  4. MAGNESIUM [Concomitant]
     Active Substance: MAGNESIUM
  5. VITAMIN C [Concomitant]
     Active Substance: ASCORBIC ACID
  6. BABY ASPIRIN [Concomitant]
  7. ZINC [Concomitant]
     Active Substance: ZINC

REACTIONS (8)
  - Muscle spasms [None]
  - Dizziness [None]
  - Dehydration [None]
  - Back pain [None]
  - Fatigue [None]
  - Nasopharyngitis [None]
  - Rhinorrhoea [None]
  - Influenza like illness [None]

NARRATIVE: CASE EVENT DATE: 20221002
